FAERS Safety Report 12692511 (Version 2)
Quarter: 2016Q3

REPORT INFORMATION
  Report Type: Report from Study
  Country: US (occurrence: US)
  Receive Date: 20160829
  Receipt Date: 20160906
  Transmission Date: 20161109
  Serious: Yes (Hospitalization, Other)
  Sender: FDA-Public Use
  Company Number: US-ABBVIE-16K-163-1708807-00

PATIENT
  Sex: Male

DRUGS (1)
  1. HUMIRA [Suspect]
     Active Substance: ADALIMUMAB
     Indication: PSORIATIC ARTHROPATHY
     Route: 058
     Dates: start: 201507, end: 20150907

REACTIONS (10)
  - Amnesia [Recovering/Resolving]
  - Central nervous system inflammation [Recovering/Resolving]
  - Vertigo [Unknown]
  - Alopecia [Recovering/Resolving]
  - Hypersensitivity [Recovering/Resolving]
  - Hyperaesthesia [Unknown]
  - Suicidal ideation [Recovering/Resolving]
  - Post-traumatic stress disorder [Recovering/Resolving]
  - Dizziness [Recovering/Resolving]
  - Depression [Recovering/Resolving]

NARRATIVE: CASE EVENT DATE: 2015
